FAERS Safety Report 7421320-2 (Version None)
Quarter: 2011Q2

REPORT INFORMATION
  Report Type: 
  Country: None (occurrence: None)
  Receive Date: 20110418
  Receipt Date: 20110405
  Transmission Date: 20111010
  Serious: Yes (Hospitalization, Other)
  Sender: FDA-Public Use
  Company Number: CA-JNJFOC-20100704484

PATIENT
  Sex: Female
  Weight: 124 kg

DRUGS (12)
  1. REMICADE [Suspect]
     Dosage: 930 MG
     Route: 042
  2. REMICADE [Suspect]
     Dosage: 930 MG
     Route: 042
  3. REMICADE [Suspect]
     Route: 042
  4. REMICADE [Suspect]
     Route: 042
  5. REMICADE [Suspect]
     Route: 042
  6. REMICADE [Suspect]
     Indication: CROHN'S DISEASE
     Dosage: 930 MG
     Route: 042
  7. REMICADE [Suspect]
     Dosage: 930 MG
     Route: 042
  8. REMICADE [Suspect]
     Dosage: 930 MG
     Route: 042
  9. REMICADE [Suspect]
     Route: 042
  10. REMICADE [Suspect]
     Dosage: 930 MG
     Route: 042
  11. REMICADE [Suspect]
     Dosage: 930 MG
     Route: 042
  12. REMICADE [Suspect]
     Route: 042

REACTIONS (6)
  - NAUSEA [None]
  - CHEST DISCOMFORT [None]
  - HOSPITALISATION [None]
  - INFUSION RELATED REACTION [None]
  - HOT FLUSH [None]
  - PULMONARY EMBOLISM [None]
